FAERS Safety Report 4992679-0 (Version None)
Quarter: 2006Q2

REPORT INFORMATION
  Report Type: 
  Country: None (occurrence: None)
  Receive Date: 20060504
  Receipt Date: 20060215
  Transmission Date: 20061013
  Serious: Yes (Hospitalization)
  Sender: FDA-Public Use
  Company Number: FR-BOEHRINGER INGELHEIM PHARMACEUTICALS, INC.-2006-FF-00130FF

PATIENT
  Sex: Male
  Weight: 59 kg

DRUGS (5)
  1. VIRAMUNE [Suspect]
     Indication: HIV INFECTION
     Route: 048
     Dates: start: 20051205, end: 20051219
  2. VIRAMUNE [Suspect]
     Route: 048
     Dates: start: 20051220, end: 20060207
  3. EPIVIR [Suspect]
     Indication: HIV INFECTION
     Route: 048
     Dates: start: 20051205, end: 20060207
  4. VIREAD [Suspect]
     Indication: HIV INFECTION
     Route: 048
     Dates: start: 20051205, end: 20060207
  5. BACTRIM DS [Concomitant]
     Indication: OPPORTUNISTIC INFECTION
     Route: 048
     Dates: start: 20051205

REACTIONS (2)
  - ASTHENIA [None]
  - HEPATITIS [None]
